FAERS Safety Report 25056298 (Version 1)
Quarter: 2025Q1

REPORT INFORMATION
  Report Type: Spontaneous
  Country: US (occurrence: None)
  Receive Date: 20250310
  Receipt Date: 20250310
  Transmission Date: 20250408
  Serious: No
  Sender: ENCUBE ETHICALS
  Company Number: US-Encube-001677

PATIENT
  Sex: Female

DRUGS (1)
  1. CICLOPIROX [Suspect]
     Active Substance: CICLOPIROX
     Indication: Onychomycosis
     Dates: end: 202502

REACTIONS (2)
  - Application site irritation [Unknown]
  - Product quality issue [Unknown]
